FAERS Safety Report 23775598 (Version 1)
Quarter: 2024Q2

REPORT INFORMATION
  Report Type: Spontaneous
  Country: ZA (occurrence: ZA)
  Receive Date: 20240423
  Receipt Date: 20240423
  Transmission Date: 20240716
  Serious: Yes (Hospitalization, Other)
  Sender: FDA-Public Use
  Company Number: ZA-BAYER-2024A058366

PATIENT
  Age: 54 Year
  Sex: Female

DRUGS (1)
  1. RIVAROXABAN [Suspect]
     Active Substance: RIVAROXABAN
     Indication: Product used for unknown indication
     Route: 048

REACTIONS (5)
  - Peripheral arterial occlusive disease [Unknown]
  - Peripheral artery thrombosis [Unknown]
  - Fasciotomy [Unknown]
  - Reperfusion injury [Unknown]
  - Dialysis [Unknown]
